FAERS Safety Report 21158750 (Version 1)
Quarter: 2022Q3

REPORT INFORMATION
  Report Type: Spontaneous
  Country: US (occurrence: US)
  Receive Date: 20220802
  Receipt Date: 20220802
  Transmission Date: 20221027
  Serious: Yes (Other)
  Sender: FDA-Public Use
  Company Number: US-MSNLABS-2022MSNSPO00846

PATIENT

DRUGS (2)
  1. CAPECITABINE [Suspect]
     Active Substance: CAPECITABINE
     Indication: Breast cancer female
     Dosage: 1500MG IN AM AND 1000MG IN EVENING FOR 2 WEEKS ON AND 1 WEEK OFF, TYKERB NEVER SHIPPED
     Route: 048
     Dates: start: 20220329
  2. TYKERB [Concomitant]
     Active Substance: LAPATINIB DITOSYLATE
     Indication: Product used for unknown indication
     Route: 065

REACTIONS (1)
  - Drug ineffective [Unknown]

NARRATIVE: CASE EVENT DATE: 20220628
